FAERS Safety Report 12854384 (Version 2)
Quarter: 2019Q3

REPORT INFORMATION
  Report Type: Report from Study
  Country: FR (occurrence: FR)
  Receive Date: 20161017
  Receipt Date: 20190922
  Transmission Date: 20191004
  Serious: Yes (Other)
  Sender: FDA-Public Use
  Company Number: FR-CELGENEUS-FRA-2015072222

PATIENT
  Age: 70 Year
  Sex: Female
  Weight: 60 kg

DRUGS (4)
  1. SIMVASTATINE [Concomitant]
     Active Substance: SIMVASTATIN
     Indication: HYPERCHOLESTEROLAEMIA
     Route: 048
     Dates: start: 2010
  2. CO-RENITEC [Concomitant]
     Active Substance: ENALAPRIL\HYDROCHLOROTHIAZIDE
     Indication: HYPERTENSION
     Route: 048
     Dates: start: 201010
  3. REVLIMID [Suspect]
     Active Substance: LENALIDOMIDE
     Indication: PLASMA CELL MYELOMA
     Dosage: 25 MILLIGRAM
     Route: 048
     Dates: start: 20080813, end: 20081002
  4. REVLIMID [Suspect]
     Active Substance: LENALIDOMIDE
     Route: 048
     Dates: end: 20100710

REACTIONS (1)
  - Invasive ductal breast carcinoma [Not Recovered/Not Resolved]

NARRATIVE: CASE EVENT DATE: 20150513
